FAERS Safety Report 7290211-2 (Version None)
Quarter: 2011Q1

REPORT INFORMATION
  Report Type: 
  Country: None (occurrence: None)
  Receive Date: 20110214
  Receipt Date: 20110207
  Transmission Date: 20110831
  Serious: Yes (Hospitalization)
  Sender: FDA-Public Use
  Company Number: PHHY2011FR10542

PATIENT
  Sex: Male

DRUGS (8)
  1. PARLODEL [Suspect]
     Indication: PARKINSONISM
     Dosage: UNK
     Route: 048
     Dates: start: 19850101, end: 20101001
  2. PARLODEL [Suspect]
     Indication: AKINESIA
  3. MANTADIX [Suspect]
     Indication: PARKINSONISM
     Dosage: UNK
     Route: 048
     Dates: start: 19850101, end: 20101001
  4. MANTADIX [Suspect]
     Indication: AKINESIA
  5. MODOPAR [Concomitant]
     Indication: PARKINSONISM
     Dosage: UNK
     Route: 048
  6. RAMIPRIL [Concomitant]
     Indication: CARDIAC FAILURE
     Route: 048
  7. STILNOX [Concomitant]
     Indication: SLEEP DISORDER
     Dosage: UNK
     Route: 048
  8. STALEVO 100 [Concomitant]
     Indication: PARKINSONISM
     Dosage: UNK

REACTIONS (4)
  - COGNITIVE DISORDER [None]
  - AUTONOMIC NERVOUS SYSTEM IMBALANCE [None]
  - CONFUSIONAL STATE [None]
  - DEMENTIA [None]
